FAERS Safety Report 16918518 (Version 1)
Quarter: 2019Q4

REPORT INFORMATION
  Report Type: Spontaneous
  Country: US (occurrence: US)
  Receive Date: 20191011
  Receipt Date: 20191011
  Transmission Date: 20200122
  Serious: Yes (Life-Threatening, Hospitalization)
  Sender: FDA-Public Use
  Company Number: None

PATIENT
  Age: 47 Year
  Sex: Male
  Weight: 99.2 kg

DRUGS (3)
  1. KEPPRA [Suspect]
     Active Substance: LEVETIRACETAM
  2. KETAMINE [Suspect]
     Active Substance: KETAMINE
  3. OMNICELL [DEVICE] [Suspect]
     Active Substance: DEVICE

REACTIONS (2)
  - Wrong product administered [None]
  - Product selection error [None]

NARRATIVE: CASE EVENT DATE: 20190625
